FAERS Safety Report 18455833 (Version 11)
Quarter: 2021Q4

REPORT INFORMATION
  Report Type: Report from Study
  Country: CN (occurrence: None)
  Receive Date: 20201102
  Receipt Date: 20211229
  Transmission Date: 20220303
  Serious: Yes (Hospitalization)
  Sender: FDA-Public Use
  Company Number: CN-ROCHE-2702134

PATIENT
  Age: 62 Year
  Sex: Male
  Weight: 80 kg

DRUGS (18)
  1. ATEZOLIZUMAB [Suspect]
     Active Substance: ATEZOLIZUMAB
     Indication: Hepatocellular carcinoma
     Dosage: DATE OF MOST RECENT DOSE OF ATEZOLIZUMAB 1200 MG PRIOR TO AE/SAE ONSET: 2 OCT 2020
     Route: 042
     Dates: start: 20190314
  2. BEVACIZUMAB [Suspect]
     Active Substance: BEVACIZUMAB
     Indication: Hepatocellular carcinoma
     Dosage: DOSE OF LAST BEVACIZUMAB ADMINISTERED PRIOR TO AE/SAE ONSET: 1125 MG?DATE OF MOST RECENT DOSE OF BEV
     Route: 042
     Dates: start: 20190314
  3. HUMALOG [Concomitant]
     Active Substance: INSULIN LISPRO
     Indication: Diabetes mellitus
     Dates: start: 201901, end: 20201114
  4. BENAZEPRIL HYDROCHLORIDE [Concomitant]
     Active Substance: BENAZEPRIL HYDROCHLORIDE
     Indication: Hypertension
     Dates: start: 20200331, end: 20201122
  5. AMLODIPINE BESYLATE [Concomitant]
     Active Substance: AMLODIPINE BESYLATE
     Indication: Hypertension
     Dates: start: 20200423, end: 20201122
  6. ALBUMIN HUMAN [Concomitant]
     Active Substance: ALBUMIN HUMAN
     Dates: start: 20201123, end: 20201126
  7. ERYTHROPOIETIN [Concomitant]
     Active Substance: ERYTHROPOIETIN
     Indication: Anaemia
     Dates: start: 20201124, end: 20201126
  8. NORFLOXACIN [Concomitant]
     Active Substance: NORFLOXACIN
     Dates: start: 20201107, end: 20201109
  9. LOPERAMIDE HYDROCHLORIDE [Concomitant]
     Active Substance: LOPERAMIDE HYDROCHLORIDE
     Dates: start: 20201107, end: 20201108
  10. MONTMORILLONITE [Concomitant]
     Active Substance: MONTMORILLONITE
     Dates: start: 20201124, end: 20201126
  11. MONTMORILLONITE [Concomitant]
     Active Substance: MONTMORILLONITE
     Dates: start: 20201124, end: 20201126
  12. MEGESTROL [Concomitant]
     Active Substance: MEGESTROL
     Dates: start: 20201111, end: 20201120
  13. OXYCODONE HYDROCHLORIDE [Concomitant]
     Active Substance: OXYCODONE HYDROCHLORIDE
     Indication: Analgesic therapy
     Dates: start: 20201124, end: 20201126
  14. TORSEMIDE [Concomitant]
     Active Substance: TORSEMIDE
     Dates: start: 20201123, end: 20201126
  15. PANTOPRAZOLE SODIUM [Concomitant]
     Active Substance: PANTOPRAZOLE SODIUM
     Dates: start: 20201124, end: 20201126
  16. INSULIN NOS [Concomitant]
     Active Substance: INSULIN NOS
     Dates: start: 20201123, end: 20201126
  17. CALCIUM GLUCONATE [Concomitant]
     Active Substance: CALCIUM GLUCONATE
     Dates: start: 20201125, end: 20201125
  18. ADEMETIONINE BUTANEDISULFONATE [Concomitant]
     Active Substance: ADEMETIONINE BUTANEDISULFONATE
     Dates: start: 20201123, end: 20201126

REACTIONS (1)
  - Liver injury [Not Recovered/Not Resolved]

NARRATIVE: CASE EVENT DATE: 20201023
